FAERS Safety Report 18956190 (Version 1)
Quarter: 2021Q1

REPORT INFORMATION
  Report Type: Spontaneous
  Country: US (occurrence: US)
  Receive Date: 20210301
  Receipt Date: 20210301
  Transmission Date: 20210420
  Serious: Yes (Other)
  Sender: FDA-Public Use
  Company Number: US-TEVA-2021-US-1884353

PATIENT
  Age: 69 Year
  Sex: Female

DRUGS (2)
  1. QVAR [Suspect]
     Active Substance: BECLOMETHASONE DIPROPIONATE
     Route: 065
  2. QVAR [Suspect]
     Active Substance: BECLOMETHASONE DIPROPIONATE

REACTIONS (2)
  - Chronic obstructive pulmonary disease [Unknown]
  - Asthma [Unknown]
